FAERS Safety Report 15941361 (Version 3)
Quarter: 2019Q3

REPORT INFORMATION
  Report Type: Spontaneous
  Country: US (occurrence: US)
  Receive Date: 20190208
  Receipt Date: 20190916
  Transmission Date: 20191004
  Serious: Yes (Other)
  Sender: FDA-Public Use
  Company Number: US-ASTRAZENECA-2018SF14637

PATIENT
  Age: 44 Year
  Sex: Female

DRUGS (25)
  1. NEXIUM [Suspect]
     Active Substance: ESOMEPRAZOLE MAGNESIUM
     Indication: GASTROOESOPHAGEAL REFLUX DISEASE
     Route: 048
     Dates: start: 20070101, end: 20121231
  2. HYDROCOD/APAP [Concomitant]
     Dosage: 500.0MG UNKNOWN
     Dates: start: 20000111
  3. THIAMINE. [Concomitant]
     Active Substance: THIAMINE
     Dosage: 10MG/15ML
     Dates: start: 20090625
  4. IBUPROFEN. [Concomitant]
     Active Substance: IBUPROFEN
     Dosage: 400.0MG UNKNOWN
     Dates: start: 20090326
  5. KLOR-CON [Concomitant]
     Active Substance: POTASSIUM CHLORIDE
  6. THIAMINE HCL [Concomitant]
     Active Substance: THIAMINE HYDROCHLORIDE
     Dosage: 100.0MG UNKNOWN
     Dates: start: 20090902
  7. IBUPROFEN. [Concomitant]
     Active Substance: IBUPROFEN
     Dosage: 10MG/15ML
     Dates: start: 20090625
  8. PROPRANOLOL [Concomitant]
     Active Substance: PROPRANOLOL HYDROCHLORIDE
     Dosage: 10MG/15ML
     Dates: start: 20090625
  9. SPIRONOLACTONE. [Concomitant]
     Active Substance: SPIRONOLACTONE
     Dosage: 10MG/15ML
     Dates: start: 20090625
  10. SPIRONOLACTONE. [Concomitant]
     Active Substance: SPIRONOLACTONE
     Dosage: 25.0MG UNKNOWN
     Dates: start: 20090622
  11. LACTULOSE. [Concomitant]
     Active Substance: LACTULOSE
     Dosage: 10MG/15ML
     Dates: start: 20090625
  12. FOLIC ACID. [Concomitant]
     Active Substance: FOLIC ACID
     Dosage: 10MG/15ML
     Dates: start: 20090625
  13. PREVACID [Suspect]
     Active Substance: LANSOPRAZOLE
     Route: 048
     Dates: start: 20090520
  14. CIPROFLOXACIN. [Concomitant]
     Active Substance: CIPROFLOXACIN
     Dosage: 10MG/15ML
     Dates: start: 20090625
  15. NEXIUM [Suspect]
     Active Substance: ESOMEPRAZOLE MAGNESIUM
     Indication: GASTROOESOPHAGEAL REFLUX DISEASE
     Route: 048
     Dates: start: 20090625
  16. NEXIUM [Suspect]
     Active Substance: ESOMEPRAZOLE MAGNESIUM
     Indication: GASTROOESOPHAGEAL REFLUX DISEASE
     Route: 048
     Dates: start: 20070101, end: 20121231
  17. CEPHALEXIN. [Concomitant]
     Active Substance: CEPHALEXIN
     Dosage: 500.0MG UNKNOWN
     Dates: start: 20000111
  18. SENNA [Concomitant]
     Active Substance: SENNA LEAF\SENNOSIDES\SENNOSIDES A AND B
     Dosage: 10MG/15ML
     Dates: start: 20090625
  19. LASIX [Concomitant]
     Active Substance: FUROSEMIDE
     Dosage: 10MG/15ML
     Dates: start: 20090625
  20. NEXIUM [Suspect]
     Active Substance: ESOMEPRAZOLE MAGNESIUM
     Indication: GASTROOESOPHAGEAL REFLUX DISEASE
     Route: 048
     Dates: start: 2009, end: 2011
  21. PREVACID [Suspect]
     Active Substance: LANSOPRAZOLE
     Route: 065
     Dates: start: 2009, end: 2011
  22. FUROSEMIDE. [Concomitant]
     Active Substance: FUROSEMIDE
     Dosage: 80.0MG UNKNOWN
     Dates: start: 20090703
  23. LEVAQUIN [Concomitant]
     Active Substance: LEVOFLOXACIN
     Dosage: 500.0MG UNKNOWN
     Dates: start: 20090701
  24. COLACE [Concomitant]
     Active Substance: DOCUSATE SODIUM
     Dosage: 10MG/15ML
     Dates: start: 20090625
  25. LACTULOSE. [Concomitant]
     Active Substance: LACTULOSE
     Dosage: 10MG/15ML
     Dates: start: 20090625

REACTIONS (5)
  - Acute kidney injury [Not Recovered/Not Resolved]
  - Renal injury [Unknown]
  - End stage renal disease [Unknown]
  - Chronic kidney disease [Unknown]
  - Renal failure [Unknown]

NARRATIVE: CASE EVENT DATE: 2010
